FAERS Safety Report 4533442-4 (Version None)
Quarter: 2004Q4

REPORT INFORMATION
  Report Type: 
  Country: None (occurrence: None)
  Receive Date: 20041210
  Receipt Date: 20040810
  Transmission Date: 20050328
  Serious: Yes (Hospitalization)
  Sender: FDA-Public Use
  Company Number: RS004649-USA

PATIENT
  Sex: Male

DRUGS (7)
  1. ACIPHEX [Suspect]
     Indication: HELICOBACTER INFECTION
     Dosage: SEE IMAGE
     Route: 048
     Dates: start: 20040804, end: 20040807
  2. ACIPHEX [Suspect]
     Indication: HELICOBACTER INFECTION
     Dosage: SEE IMAGE
     Route: 048
     Dates: start: 20040808, end: 20040808
  3. ACIPHEX [Suspect]
     Indication: HELICOBACTER INFECTION
     Dosage: SEE IMAGE
     Route: 048
     Dates: start: 20040809, end: 20040809
  4. CLARITHROMYCIN [Concomitant]
  5. AMOXICILLIN [Concomitant]
  6. ASPIRIN (ASPIRIN PLUS C) [Concomitant]
  7. FOLIC ACID [Concomitant]

REACTIONS (4)
  - CONFUSIONAL STATE [None]
  - DIZZINESS [None]
  - FEELING JITTERY [None]
  - INSOMNIA [None]
